FAERS Safety Report 21073996 (Version 1)
Quarter: 2022Q3

REPORT INFORMATION
  Report Type: Spontaneous
  Country: US (occurrence: US)
  Receive Date: 20220713
  Receipt Date: 20220713
  Transmission Date: 20221027
  Serious: No
  Sender: FDA-Public Use
  Company Number: US-BRISTOL-MYERS SQUIBB COMPANY-2022-060896

PATIENT
  Age: 67 Year
  Sex: Male
  Weight: 123.38 kg

DRUGS (1)
  1. ONUREG [Suspect]
     Active Substance: AZACITIDINE
     Indication: Acute myeloid leukaemia
     Dosage: 1 DAILY FOR 14 DAYS/14 DAYS OFF.
     Route: 048
     Dates: start: 202107

REACTIONS (2)
  - Diarrhoea [Unknown]
  - Vomiting [Unknown]
